FAERS Safety Report 22215006 (Version 1)
Quarter: 2023Q2

REPORT INFORMATION
  Report Type: Spontaneous
  Country: US (occurrence: US)
  Receive Date: 20230415
  Receipt Date: 20230415
  Transmission Date: 20230722
  Serious: No
  Sender: FDA-Public Use
  Company Number: US-JNJFOC-20190817317

PATIENT
  Age: 66 Year
  Sex: Female
  Weight: 59.020 kg

DRUGS (1)
  1. IMODIUM MULTI-SYMPTOM RELIEF [Suspect]
     Active Substance: DIMETHICONE\LOPERAMIDE HYDROCHLORIDE
     Indication: Intestinal operation
     Dosage: 2 TO TWO PILLS AT A TIME. 8 TO 10 TIMES A DAY
     Route: 048
     Dates: start: 20190812

REACTIONS (3)
  - Prescribed overdose [Unknown]
  - Off label use [Unknown]
  - Product use in unapproved indication [Unknown]
